FAERS Safety Report 17278717 (Version 2)
Quarter: 2020Q1

REPORT INFORMATION
  Report Type: Spontaneous
  Country: JP (occurrence: JP)
  Receive Date: 20200116
  Receipt Date: 20200205
  Transmission Date: 20200409
  Serious: Yes (Other)
  Sender: FDA-Public Use
  Company Number: JP-PFIZER INC-2020017793

PATIENT
  Age: 89 Year
  Sex: Female

DRUGS (5)
  1. TARLIGE [Concomitant]
     Active Substance: MIROGABALIN BESYLATE
     Dosage: 5 MG, UNK
  2. ROSUVASTATIN OD DSEP [Concomitant]
     Dosage: 2.5 MG, UNK
  3. AMLODIPINE [AMLODIPINE BESILATE] [Concomitant]
     Active Substance: AMLODIPINE BESYLATE
     Dosage: 2.5 MG, UNK
  4. AMLODIPINE [AMLODIPINE BESILATE] [Concomitant]
     Active Substance: AMLODIPINE BESYLATE
     Dosage: 5 MG, UNK
  5. LORBRENA [Suspect]
     Active Substance: LORLATINIB
     Indication: NON-SMALL CELL LUNG CANCER
     Dosage: 100 MG, 1X/DAY
     Route: 048
     Dates: start: 20191015, end: 20191030

REACTIONS (3)
  - Memory impairment [Unknown]
  - Altered state of consciousness [Unknown]
  - Panic disorder [Unknown]

NARRATIVE: CASE EVENT DATE: 20191016
